FAERS Safety Report 7457836-2 (Version None)
Quarter: 2011Q2

REPORT INFORMATION
  Report Type: 
  Country: None (occurrence: None)
  Receive Date: 20110504
  Receipt Date: 20110428
  Transmission Date: 20111010
  Serious: Yes (Hospitalization)
  Sender: FDA-Public Use
  Company Number: US-GILEAD-2010-0034161

PATIENT
  Sex: Male
  Weight: 68.554 kg

DRUGS (13)
  1. FUROSEMIDE [Concomitant]
  2. AMBRISENTAN [Suspect]
     Indication: IDIOPATHIC PULMONARY FIBROSIS
     Route: 048
     Dates: start: 20101118
  3. ARFORMOTEROL TARTRATE [Concomitant]
  4. PLAVIX [Concomitant]
  5. DILTIAZEM [Concomitant]
  6. AMBRISENTAN [Suspect]
     Indication: PULMONARY HYPERTENSION
  7. SPIRIVA [Concomitant]
  8. PREDNICOT [Concomitant]
  9. BUDESONIDE [Concomitant]
  10. AZITHROMYCIN [Concomitant]
  11. ASPIRIN [Concomitant]
  12. DIGOXIN [Concomitant]
  13. ATORVASTATIN CALCIUM [Concomitant]

REACTIONS (2)
  - HYPOXIA [None]
  - DYSPNOEA [None]
